FAERS Safety Report 8684463 (Version 3)
Quarter: 2012Q4

REPORT INFORMATION
  Report Type: 
  Country: US (occurrence: US)
  Receive Date: 20120726
  Receipt Date: 20120927
  Transmission Date: 20130627
  Serious: Yes (Other)
  Sender: FDA-Public Use
  Company Number: PHEH2012US014567

PATIENT
  Age: 80 Year
  Sex: Female
  Weight: 52.15 kg

DRUGS (2)
  1. EXELON PATCH [Suspect]
     Indication: DEMENTIA ALZHEIMER^S TYPE
     Dosage: 9.5 mg, daily
     Route: 062
  2. EXELON PATCH [Suspect]
     Dosage: 9.5 mg, QOD
     Route: 062

REACTIONS (3)
  - Periorbital contusion [Recovering/Resolving]
  - Fall [Recovering/Resolving]
  - Weight decreased [Recovering/Resolving]
